FAERS Safety Report 6176172-8 (Version None)
Quarter: 2009Q2

REPORT INFORMATION
  Report Type: 
  Country: None (occurrence: None)
  Receive Date: 20090501
  Receipt Date: 20090429
  Transmission Date: 20091009
  Serious: No
  Sender: FDA-Public Use
  Company Number: US-JNJFOC-20090500002

PATIENT
  Sex: Male
  Weight: 72.58 kg

DRUGS (5)
  1. FENTANYL TRANSDERMAL SYSTEM [Suspect]
     Indication: BACK PAIN
     Route: 062
  2. LISINOPRIL [Concomitant]
     Indication: HYPERTENSION
     Route: 048
  3. CYMBALTA [Concomitant]
     Indication: DEPRESSION
     Route: 048
  4. ZEGERID [Concomitant]
     Indication: GASTROOESOPHAGEAL REFLUX DISEASE
     Route: 048
  5. MORPHINE [Concomitant]
     Indication: BACK PAIN
     Dosage: 30 MG TOTAL 2-3 TIMES A DAY AS NEEDED
     Route: 048

REACTIONS (2)
  - TREATMENT NONCOMPLIANCE [None]
  - WITHDRAWAL SYNDROME [None]
